FAERS Safety Report 17038464 (Version 3)
Quarter: 2022Q3

REPORT INFORMATION
  Report Type: Report from Study
  Country: US (occurrence: US)
  Receive Date: 20191115
  Receipt Date: 20220915
  Transmission Date: 20221027
  Serious: Yes (Other)
  Sender: FDA-Public Use
  Company Number: US-TEVA-2019-US-1135607

PATIENT
  Age: 57 Year
  Sex: Male

DRUGS (1)
  1. COPAXONE [Suspect]
     Active Substance: GLATIRAMER ACETATE
     Indication: Multiple sclerosis
     Route: 058
     Dates: start: 20080714

REACTIONS (8)
  - Hemiparaesthesia [Recovered/Resolved]
  - Injection site urticaria [Unknown]
  - Grip strength decreased [Unknown]
  - Injection site swelling [Unknown]
  - Injection site rash [Unknown]
  - Injection site atrophy [Unknown]
  - Injection site haemorrhage [Unknown]
  - Wrong technique in product usage process [Unknown]

NARRATIVE: CASE EVENT DATE: 20191106
